FAERS Safety Report 14545672 (Version 3)
Quarter: 2019Q3

REPORT INFORMATION
  Report Type: Report from Study
  Country: None (occurrence: US)
  Receive Date: 20180218
  Receipt Date: 20190724
  Transmission Date: 20191004
  Serious: Yes (Other)
  Sender: FDA-Public Use
  Company Number: US-ABBVIE-17K-163-1845306-00

PATIENT
  Age: 46 Year
  Sex: Female

DRUGS (3)
  1. HUMIRA [Suspect]
     Active Substance: ADALIMUMAB
     Indication: PSORIATIC ARTHROPATHY
     Route: 058
  2. CYMBALTA [Suspect]
     Active Substance: DULOXETINE HYDROCHLORIDE
     Indication: PRODUCT USED FOR UNKNOWN INDICATION
     Route: 065
  3. HUMIRA [Suspect]
     Active Substance: ADALIMUMAB
     Indication: PSORIASIS

REACTIONS (19)
  - Full blood count decreased [Unknown]
  - Blood iron decreased [Unknown]
  - Spinal osteoarthritis [Unknown]
  - Dysstasia [Unknown]
  - Peripheral swelling [Unknown]
  - Mobility decreased [Unknown]
  - Intervertebral disc protrusion [Unknown]
  - Rheumatoid arthritis [Unknown]
  - Erythema [Unknown]
  - Pain in extremity [Unknown]
  - Weight increased [Unknown]
  - Thrombosis [Recovering/Resolving]
  - Pain [Unknown]
  - Osteoarthritis [Unknown]
  - Arthropathy [Unknown]
  - Back pain [Unknown]
  - Systemic lupus erythematosus [Unknown]
  - Lyme disease [Unknown]
  - Psoriasis [Unknown]

NARRATIVE: CASE EVENT DATE: 20160115
